FAERS Safety Report 25076396 (Version 1)
Quarter: 2025Q1

REPORT INFORMATION
  Report Type: Spontaneous
  Country: CN (occurrence: CN)
  Receive Date: 20250313
  Receipt Date: 20250313
  Transmission Date: 20250408
  Serious: Yes (Other)
  Sender: PFIZER
  Company Number: CN-PFIZER INC-PV202500029801

PATIENT
  Age: 101 Year
  Sex: Female
  Weight: 45 kg

DRUGS (1)
  1. VORICONAZOLE [Suspect]
     Active Substance: VORICONAZOLE
     Indication: Oral candidiasis
     Dosage: 200 MG, 2X/DAY
     Route: 048
     Dates: start: 20241202, end: 20241206

REACTIONS (3)
  - Delirium [Recovering/Resolving]
  - Altered state of consciousness [Recovering/Resolving]
  - Disorganised speech [Recovering/Resolving]

NARRATIVE: CASE EVENT DATE: 20241206
